FAERS Safety Report 6634189-0 (Version None)
Quarter: 2010Q1

REPORT INFORMATION
  Report Type: 
  Country: None (occurrence: None)
  Receive Date: 20100309
  Receipt Date: 20100226
  Transmission Date: 20100710
  Serious: Yes (Other)
  Sender: FDA-Public Use
  Company Number: 2010EU000820

PATIENT
  Sex: Male

DRUGS (3)
  1. PROGRAF [Suspect]
     Indication: TRANSPLANT
  2. CELLCEPT [Concomitant]
  3. CORTICOSTEROIDS NOS (CORTICOSTEROID NOS) [Concomitant]

REACTIONS (3)
  - CEREBRAL ATAXIA [None]
  - CONFUSIONAL STATE [None]
  - TREMOR [None]
